FAERS Safety Report 15067991 (Version 1)
Quarter: 2018Q2

REPORT INFORMATION
  Report Type: Spontaneous
  Country: US (occurrence: US)
  Receive Date: 20180626
  Receipt Date: 20180626
  Transmission Date: 20180711
  Serious: No
  Sender: FDA-Public Use
  Company Number: US-ASTRAZENECA-2018SE77853

PATIENT
  Age: 73 Year
  Sex: Male

DRUGS (3)
  1. FASENRA [Suspect]
     Active Substance: BENRALIZUMAB
     Indication: ASTHMA
     Dosage: 30 MG, FIRST THREE DOSES EVERY 4 WEEKS AND 8 WEEKS
     Route: 058
     Dates: start: 201805
  2. FASENRA [Suspect]
     Active Substance: BENRALIZUMAB
     Indication: ASTHMA
     Dosage: 30 MG, FIRST THREE DOSES EVERY 4 WEEKS AND 8 WEEKS
     Route: 058
     Dates: start: 201804
  3. FASENRA [Suspect]
     Active Substance: BENRALIZUMAB
     Indication: ASTHMA
     Dosage: 30 MG, FIRST THREE DOSES EVERY 4 WEEKS AND 8 WEEKS
     Route: 058
     Dates: start: 20180606

REACTIONS (1)
  - Heart rate decreased [Recovered/Resolved]

NARRATIVE: CASE EVENT DATE: 2018
